FAERS Safety Report 25045847 (Version 1)
Quarter: 2025Q1

REPORT INFORMATION
  Report Type: Spontaneous
  Country: US (occurrence: US)
  Receive Date: 20250306
  Receipt Date: 20250306
  Transmission Date: 20250409
  Serious: No
  Sender: SAMSUNG BIOEPIS
  Company Number: US-SAMSUNG BIOEPIS-SB-2024-04670

PATIENT
  Age: 47 Year
  Sex: Female

DRUGS (1)
  1. HADLIMA [Suspect]
     Active Substance: ADALIMUMAB-BWWD
     Indication: Colitis ulcerative
     Dosage: 40 MG/0.4
     Route: 065
     Dates: start: 20240128

REACTIONS (3)
  - Frequent bowel movements [Recovered/Resolved]
  - Abdominal discomfort [Recovered/Resolved]
  - Stress [Recovered/Resolved]

NARRATIVE: CASE EVENT DATE: 20240205
